FAERS Safety Report 25115879 (Version 1)
Quarter: 2025Q1

REPORT INFORMATION
  Report Type: Spontaneous
  Country: US (occurrence: US)
  Receive Date: 20250325
  Receipt Date: 20250325
  Transmission Date: 20250409
  Serious: Yes (Other)
  Sender: STRIDES
  Company Number: US-STRIDES ARCOLAB LIMITED-2024SP001861

PATIENT
  Age: 39 Year
  Sex: Male

DRUGS (10)
  1. OXYCODONE [Suspect]
     Active Substance: OXYCODONE
     Indication: Somatic symptom disorder
     Route: 065
  2. OXYCODONE [Suspect]
     Active Substance: OXYCODONE
     Indication: Suicidal ideation
  3. QUETIAPINE [Suspect]
     Active Substance: QUETIAPINE
     Indication: Somatic symptom disorder
     Route: 065
  4. QUETIAPINE [Suspect]
     Active Substance: QUETIAPINE
     Indication: Suicidal ideation
  5. MIRTAZAPINE [Suspect]
     Active Substance: MIRTAZAPINE
     Indication: Somatic symptom disorder
     Route: 065
  6. MIRTAZAPINE [Suspect]
     Active Substance: MIRTAZAPINE
     Indication: Suicidal ideation
  7. METHADONE [Suspect]
     Active Substance: METHADONE HYDROCHLORIDE
     Indication: Somatic symptom disorder
     Route: 065
  8. METHADONE [Suspect]
     Active Substance: METHADONE HYDROCHLORIDE
     Indication: Suicidal ideation
  9. PRAZOSIN [Suspect]
     Active Substance: PRAZOSIN
     Indication: Somatic symptom disorder
     Route: 065
  10. PRAZOSIN [Suspect]
     Active Substance: PRAZOSIN
     Indication: Suicidal ideation

REACTIONS (1)
  - Drug ineffective for unapproved indication [Unknown]
